FAERS Safety Report 6093326-X (Version None)
Quarter: 2009Q1

REPORT INFORMATION
  Report Type: 
  Country: None (occurrence: None)
  Receive Date: 20090226
  Receipt Date: 20090218
  Transmission Date: 20090719
  Serious: Yes (Disabling, Other)
  Sender: FDA-Public Use
  Company Number: CA-ASTRAZENECA-2009UW02861

PATIENT
  Age: 72 Year
  Sex: Male

DRUGS (5)
  1. SYMBICORT [Suspect]
     Route: 055
     Dates: start: 20040101
  2. PAROXETINE HCL [Concomitant]
     Route: 048
     Dates: start: 20060401
  3. SPIRIVA [Concomitant]
     Route: 048
     Dates: start: 20040801
  4. AMILZIDE [Concomitant]
     Route: 048
     Dates: start: 20081001
  5. VENTOLIN [Concomitant]
     Route: 048
     Dates: start: 20080901

REACTIONS (2)
  - DRUG INEFFECTIVE [None]
  - DYSPNOEA [None]
